FAERS Safety Report 6837405-5 (Version None)
Quarter: 2010Q3

REPORT INFORMATION
  Report Type: 
  Country: None (occurrence: None)
  Receive Date: 20100713
  Receipt Date: 20070511
  Transmission Date: 20110219
  Serious: No
  Sender: FDA-Public Use
  Company Number: US-PFIZER INC-2007038629

PATIENT
  Sex: Female
  Weight: 90 kg

DRUGS (4)
  1. CHANTIX [Suspect]
     Indication: SMOKING CESSATION THERAPY
     Dates: start: 20070505
  2. LORTAB [Concomitant]
  3. PROZAC [Concomitant]
  4. ESTROGENS ESTERIFIED [Concomitant]
     Indication: HORMONE THERAPY

REACTIONS (1)
  - MIDDLE INSOMNIA [None]
